FAERS Safety Report 14305812 (Version 4)
Quarter: 2018Q1

REPORT INFORMATION
  Report Type: Spontaneous
  Country: JP (occurrence: JP)
  Receive Date: 20171219
  Receipt Date: 20180222
  Transmission Date: 20180509
  Serious: Yes (Hospitalization, Other)
  Sender: FDA-Public Use
  Company Number: JP-OTSUKA-2017_016855

PATIENT
  Sex: Female

DRUGS (36)
  1. ABILIFY [Suspect]
     Active Substance: ARIPIPRAZOLE
     Indication: SCHIZOPHRENIA
     Dosage: 6MG TAB+3MG TAB:30MG/DAY
     Route: 048
     Dates: end: 20170728
  2. PICOSULFATE NA [Concomitant]
     Active Substance: SODIUM PICOSULFATE
     Dosage: 5 MG, QD
     Route: 048
     Dates: start: 20170815, end: 20170916
  3. PRAVASTATIN. [Concomitant]
     Active Substance: PRAVASTATIN
     Dosage: 10 MG, QD
     Route: 048
     Dates: start: 20171011
  4. BIOFERMIN [Concomitant]
     Active Substance: BACILLUS SUBTILIS\LACTOBACILLUS ACIDOPHILUS\STREPTOCOCCUS FAECAIS
     Dosage: 2 TABLETS, QD
     Route: 048
     Dates: start: 20170731, end: 20170802
  5. PRAVASTATIN. [Concomitant]
     Active Substance: PRAVASTATIN
     Indication: PRODUCT USED FOR UNKNOWN INDICATION
     Dosage: 10 MG, QD
     Route: 048
     Dates: end: 20170728
  6. PICOSULFATE NA [Concomitant]
     Active Substance: SODIUM PICOSULFATE
     Indication: PRODUCT USED FOR UNKNOWN INDICATION
     Dosage: 5 MG, QD
     Route: 048
     Dates: end: 20170728
  7. BIOFERMIN [Concomitant]
     Active Substance: BACILLUS SUBTILIS\LACTOBACILLUS ACIDOPHILUS\STREPTOCOCCUS FAECAIS
     Dosage: 2 TABLETS, QD
     Route: 048
     Dates: start: 20171011
  8. FERROUS CITRATE [Concomitant]
     Active Substance: FERROUS CITRATE
     Indication: PRODUCT USED FOR UNKNOWN INDICATION
     Dosage: 100 MG, QD
     Route: 048
     Dates: end: 20170728
  9. FERROUS CITRATE [Concomitant]
     Active Substance: FERROUS CITRATE
     Dosage: 100 MG, QD
     Route: 048
     Dates: start: 20170815, end: 20170916
  10. CARBAMAZEPINE. [Concomitant]
     Active Substance: CARBAMAZEPINE
     Indication: PRODUCT USED FOR UNKNOWN INDICATION
     Dosage: 200MG TAB+100MG TAB:600MG/DAY
     Route: 048
     Dates: end: 20170728
  11. CARBAMAZEPINE. [Concomitant]
     Active Substance: CARBAMAZEPINE
     Dosage: 200MG TAB+100MG TAB:600MG/DAY
     Route: 048
     Dates: start: 20170815, end: 20170916
  12. ABILIFY [Suspect]
     Active Substance: ARIPIPRAZOLE
     Dosage: 6MG TAB+3MG TAB:30MG/DAY
     Route: 048
     Dates: start: 20170815, end: 20170916
  13. ABILIFY [Suspect]
     Active Substance: ARIPIPRAZOLE
     Dosage: 6MG TAB+3MG TAB:30MG/DAY
     Route: 048
     Dates: start: 20171011
  14. ABILIFY [Suspect]
     Active Substance: ARIPIPRAZOLE
     Indication: SCHIZOPHRENIA
     Dosage: 6MG TAB+3MG TAB:30MG/DAY
     Route: 048
     Dates: end: 20170728
  15. ABILIFY [Suspect]
     Active Substance: ARIPIPRAZOLE
     Dosage: 6MG TAB+3MG TAB:30MG/DAY
     Route: 048
     Dates: start: 20170815, end: 20170916
  16. PRAVASTATIN. [Concomitant]
     Active Substance: PRAVASTATIN
     Dosage: 10 MG, QD
     Route: 048
     Dates: start: 20170815, end: 20170916
  17. CARBAMAZEPINE. [Concomitant]
     Active Substance: CARBAMAZEPINE
     Dosage: 200MG TAB+100MG TAB:600MG/DAY
     Route: 048
     Dates: start: 20171011
  18. OLANZAPINE. [Concomitant]
     Active Substance: OLANZAPINE
     Dosage: 10 MG, QD
     Route: 048
     Dates: start: 20170731, end: 20170802
  19. OLANZAPINE. [Concomitant]
     Active Substance: OLANZAPINE
     Dosage: 10 MG, QD
     Route: 048
     Dates: start: 20171011
  20. FERROUS CITRATE [Concomitant]
     Active Substance: FERROUS CITRATE
     Dosage: 100 MG, QD
     Route: 048
     Dates: start: 20170731, end: 20170802
  21. CARBAMAZEPINE. [Concomitant]
     Active Substance: CARBAMAZEPINE
     Dosage: 200MG TAB+100MG TAB:600MG/DAY
     Route: 048
     Dates: start: 20170731, end: 20170802
  22. CARBAMAZEPINE. [Concomitant]
     Active Substance: CARBAMAZEPINE
     Dosage: 200MG TAB+100MG TAB:600MG/DAY
     Route: 048
     Dates: start: 20170731, end: 20170802
  23. ABILIFY [Suspect]
     Active Substance: ARIPIPRAZOLE
     Indication: MANIA
     Dosage: 6MG TAB+3MG TAB:30MG/DAY
     Route: 048
     Dates: start: 20170731, end: 20170802
  24. ABILIFY [Suspect]
     Active Substance: ARIPIPRAZOLE
     Dosage: 6MG TAB+3MG TAB:30MG/DAY
     Route: 048
     Dates: start: 20171011
  25. BIOFERMIN [Concomitant]
     Active Substance: BACILLUS SUBTILIS\LACTOBACILLUS ACIDOPHILUS\STREPTOCOCCUS FAECAIS
     Indication: PRODUCT USED FOR UNKNOWN INDICATION
     Dosage: 2 TABLETS, QD
     Route: 048
     Dates: end: 20170728
  26. OLANZAPINE. [Concomitant]
     Active Substance: OLANZAPINE
     Dosage: 10 MG, QD
     Route: 048
     Dates: start: 20170815, end: 20170916
  27. ABILIFY [Suspect]
     Active Substance: ARIPIPRAZOLE
     Indication: MANIA
     Dosage: 6MG TAB+3MG TAB:30MG/DAY
     Route: 048
     Dates: start: 20170731, end: 20170802
  28. PICOSULFATE NA [Concomitant]
     Active Substance: SODIUM PICOSULFATE
     Dosage: 5 MG, QD
     Route: 048
     Dates: start: 20171011
  29. BIOFERMIN [Concomitant]
     Active Substance: BACILLUS SUBTILIS\LACTOBACILLUS ACIDOPHILUS\STREPTOCOCCUS FAECAIS
     Dosage: 2 TABLETS, QD
     Route: 048
     Dates: start: 20170815, end: 20170916
  30. CARBAMAZEPINE. [Concomitant]
     Active Substance: CARBAMAZEPINE
     Indication: PRODUCT USED FOR UNKNOWN INDICATION
     Dosage: 200MG TAB+100MG TAB:600MG/DAY
     Route: 048
     Dates: end: 20170728
  31. CARBAMAZEPINE. [Concomitant]
     Active Substance: CARBAMAZEPINE
     Dosage: 200MG TAB+100MG TAB:600MG/DAY
     Route: 048
     Dates: start: 20170815, end: 20170916
  32. OLANZAPINE. [Concomitant]
     Active Substance: OLANZAPINE
     Indication: PRODUCT USED FOR UNKNOWN INDICATION
     Dosage: 10 MG, QD
     Route: 048
     Dates: end: 20170728
  33. PRAVASTATIN. [Concomitant]
     Active Substance: PRAVASTATIN
     Dosage: 10 MG, QD
     Route: 048
     Dates: start: 20170731, end: 20170802
  34. PICOSULFATE NA [Concomitant]
     Active Substance: SODIUM PICOSULFATE
     Dosage: 5 MG, QD
     Route: 048
     Dates: start: 20170731, end: 20170802
  35. FERROUS CITRATE [Concomitant]
     Active Substance: FERROUS CITRATE
     Dosage: 100 MG, QD
     Route: 048
     Dates: start: 20171011
  36. CARBAMAZEPINE. [Concomitant]
     Active Substance: CARBAMAZEPINE
     Dosage: 200MG TAB+100MG TAB:600MG/DAY
     Route: 048
     Dates: start: 20171011

REACTIONS (4)
  - Ileus [Recovered/Resolved]
  - Pancreatitis [Not Recovered/Not Resolved]
  - Superior mesenteric artery syndrome [Recovered/Resolved]
  - Nausea [Recovered/Resolved]
